FAERS Safety Report 9209073 (Version 8)
Quarter: 2014Q3

REPORT INFORMATION
  Report Type: Spontaneous
  Country: US (occurrence: US)
  Receive Date: 20130404
  Receipt Date: 20140926
  Transmission Date: 20150326
  Serious: Yes (Hospitalization, Other)
  Sender: FDA-Public Use
  Company Number: US-JNJFOC-20130204139

PATIENT
  Sex: Female

DRUGS (11)
  1. TYLENOL EXTRA STRENGTH GEL CAPS [Suspect]
     Active Substance: ACETAMINOPHEN
     Indication: HEADACHE
     Dates: start: 200801, end: 200909
  2. ETHANOL [Suspect]
     Active Substance: ALCOHOL
     Indication: PRODUCT USED FOR UNKNOWN INDICATION
     Route: 065
  3. TYLENOL [Suspect]
     Active Substance: ACETAMINOPHEN
     Route: 048
  4. TYLENOL [Suspect]
     Active Substance: ACETAMINOPHEN
     Indication: PAIN
     Route: 048
     Dates: start: 2011
  5. TYLENOL EXTRA STRENGTH GEL CAPS [Suspect]
     Active Substance: ACETAMINOPHEN
     Indication: PAIN
     Dates: start: 200801, end: 200909
  6. TYLENOL EXTRA STRENGTH [Suspect]
     Active Substance: ACETAMINOPHEN
     Indication: HEADACHE
     Dates: start: 200801, end: 200909
  7. HERBAL MEDICATION [Suspect]
     Active Substance: HERBALS
     Indication: PRODUCT USED FOR UNKNOWN INDICATION
     Route: 065
  8. TYLENOL EXTRA STRENGTH [Suspect]
     Active Substance: ACETAMINOPHEN
     Indication: PAIN
     Dates: start: 200801, end: 200909
  9. TYLENOL EXTRA STRENGTH GEL CAPS [Suspect]
     Active Substance: ACETAMINOPHEN
     Indication: TOOTHACHE
     Dates: start: 200801, end: 200909
  10. TYLENOL EXTRA STRENGTH [Suspect]
     Active Substance: ACETAMINOPHEN
     Indication: TOOTHACHE
     Dates: start: 200801, end: 200909
  11. TYLENOL PM [Suspect]
     Active Substance: ACETAMINOPHEN\DIPHENHYDRAMINE
     Indication: PAIN
     Route: 048
     Dates: start: 2011

REACTIONS (5)
  - Chronic hepatitis C [Unknown]
  - Hepatitis acute [Unknown]
  - Acute hepatic failure [Unknown]
  - Transaminases increased [Unknown]
  - Pancreatitis [Unknown]

NARRATIVE: CASE EVENT DATE: 2011
